FAERS Safety Report 21685944 (Version 3)
Quarter: 2023Q1

REPORT INFORMATION
  Report Type: Report from Study
  Country: US (occurrence: US)
  Receive Date: 20221206
  Receipt Date: 20230131
  Transmission Date: 20230418
  Serious: Yes (Other)
  Sender: FDA-Public Use
  Company Number: US-ABBVIE-4224717

PATIENT
  Sex: Female

DRUGS (15)
  1. RINVOQ [Suspect]
     Active Substance: UPADACITINIB
     Indication: Rheumatoid arthritis
     Dosage: FORM STRENGTH: 15 MILLIGRAM
     Route: 048
     Dates: start: 20191106
  2. EUTHYROX [Concomitant]
     Active Substance: LEVOTHYROXINE SODIUM
     Indication: Product used for unknown indication
     Route: 048
  3. PLAQUENIL 200 Milligram [Concomitant]
     Indication: Product used for unknown indication
     Dosage: FORM STRENGTH 200 MILLIGRAM
     Route: 048
  4. TYLENOL [Concomitant]
     Active Substance: ACETAMINOPHEN
     Indication: Product used for unknown indication
     Route: 048
  5. TYLENOL 325 Milligram [Concomitant]
     Indication: Product used for unknown indication
     Dosage: FORM STRENGTH 325 MILLIGRAM
     Route: 048
  6. SIMVASTATIN [Concomitant]
     Active Substance: SIMVASTATIN
     Indication: Product used for unknown indication
     Route: 048
  7. EUTHYROX 50 Microgram [Concomitant]
     Indication: Product used for unknown indication
     Dosage: FORM STRENGTH  50 MICROGRAM
     Route: 048
  8. XANAX [Concomitant]
     Active Substance: ALPRAZOLAM
     Indication: Product used for unknown indication
     Route: 048
  9. SIMVASTATIN 40 Milligram [Concomitant]
     Indication: Product used for unknown indication
     Dosage: FORM STRENGTH 40 MILLIGRAM
     Route: 048
  10. NAPROXEN [Concomitant]
     Active Substance: NAPROXEN
     Indication: Product used for unknown indication
     Route: 048
  11. GABAPENTIN 300 Milligram [Concomitant]
     Indication: Product used for unknown indication
     Dosage: FORM STRENGTH 300 MILLIGRAM
     Route: 048
  12. GABAPENTIN [Concomitant]
     Active Substance: GABAPENTIN
     Indication: Product used for unknown indication
     Route: 048
  13. NAPROXEN 500 Milligram [Concomitant]
     Indication: Product used for unknown indication
     Dosage: FORM STRENGTH 500 MILLIGRAM
     Route: 048
  14. PLAQUENIL [Concomitant]
     Active Substance: HYDROXYCHLOROQUINE SULFATE
     Indication: Product used for unknown indication
     Route: 048
  15. XANAX 0.5 Milligram [Concomitant]
     Indication: Product used for unknown indication
     Dosage: FORM STRENGTH: 0.5 MILLIGRAM
     Route: 048

REACTIONS (1)
  - Skin cancer [Not Recovered/Not Resolved]

NARRATIVE: CASE EVENT DATE: 20220101
